FAERS Safety Report 11104218 (Version 1)
Quarter: 2015Q2

REPORT INFORMATION
  Report Type: Spontaneous
  Country: BR (occurrence: None)
  Receive Date: 20150507
  Receipt Date: 20150507
  Transmission Date: 20150821
  Serious: Yes (Death, Other)
  Sender: FDA-Public Use
  Company Number: BR-TORRENT-00002912

PATIENT
  Age: 79 Year
  Sex: Female

DRUGS (3)
  1. RESPIDON (INN:RISPERIDONE) [Suspect]
     Active Substance: RISPERIDONE
     Indication: AGGRESSION
     Route: 048
     Dates: start: 201503, end: 20150427
  2. HEIMER [Concomitant]
     Active Substance: MEMANTINE HYDROCHLORIDE
  3. RIVOTRIL [Suspect]
     Active Substance: CLONAZEPAM

REACTIONS (1)
  - Myocardial infarction [None]

NARRATIVE: CASE EVENT DATE: 20150427
